FAERS Safety Report 4429712-0 (Version None)
Quarter: 2004Q3

REPORT INFORMATION
  Report Type: 
  Country: None (occurrence: None)
  Receive Date: 20040820
  Receipt Date: 20040809
  Transmission Date: 20050211
  Serious: Yes (Other)
  Sender: FDA-Public Use
  Company Number: US-JNJFOC-20040803094

PATIENT
  Sex: Male

DRUGS (12)
  1. BLINDED; INFLIXIMAB, RECOMBINANT [Suspect]
     Route: 042
  2. BLINDED; INFLIXIMAB, RECOMBINANT [Suspect]
     Route: 042
  3. BLINDED; INFLIXIMAB, RECOMBINANT [Suspect]
     Route: 042
  4. BLINDED; INFLIXIMAB, RECOMBINANT [Suspect]
     Route: 042
  5. BLINDED; INFLIXIMAB, RECOMBINANT [Suspect]
     Route: 042
  6. BLINDED; INFLIXIMAB, RECOMBINANT [Suspect]
     Indication: PSORIASIS
     Route: 042
  7. PLACEBO [Suspect]
     Route: 042
  8. PLACEBO [Suspect]
     Route: 042
  9. PLACEBO [Suspect]
     Route: 042
  10. PLACEBO [Suspect]
     Route: 042
  11. PLACEBO [Suspect]
     Route: 042
  12. PLACEBO [Suspect]
     Indication: PSORIASIS
     Route: 042

REACTIONS (8)
  - CARDIOMEGALY [None]
  - COUGH [None]
  - HAEMOPTYSIS [None]
  - LUNG CANCER METASTATIC [None]
  - LYMPHADENOPATHY [None]
  - METASTASES TO LYMPH NODES [None]
  - PULMONARY HILUM MASS [None]
  - TUBERCULOSIS [None]
